FAERS Safety Report 10090284 (Version 2)
Quarter: 2014Q2

REPORT INFORMATION
  Report Type: Spontaneous
  Country: US (occurrence: US)
  Receive Date: 20140421
  Receipt Date: 20140509
  Transmission Date: 20141212
  Serious: Yes (Other)
  Sender: FDA-Public Use
  Company Number: US-BAYER-2014-056175

PATIENT
  Age: 45 Year
  Sex: Female

DRUGS (3)
  1. OCELLA [Suspect]
  2. YASMIN [Suspect]
  3. ASPIRIN [Concomitant]

REACTIONS (2)
  - Pulmonary embolism [Recovered/Resolved]
  - Cerebrovascular accident [None]
